FAERS Safety Report 9455919 (Version 1)
Quarter: 2013Q3

REPORT INFORMATION
  Report Type: Spontaneous
  Country: US (occurrence: US)
  Receive Date: 20130813
  Receipt Date: 20130813
  Transmission Date: 20140515
  Serious: No
  Sender: FDA-Public Use
  Company Number: US-TEVA-425148USA

PATIENT
  Age: 59 Year
  Sex: Female

DRUGS (1)
  1. NUVIGIL [Suspect]
     Route: 048
     Dates: start: 201207

REACTIONS (2)
  - Tension [Unknown]
  - Insomnia [Unknown]
